FAERS Safety Report 25351299 (Version 1)
Quarter: 2025Q2

REPORT INFORMATION
  Report Type: Spontaneous
  Country: US (occurrence: US)
  Receive Date: 20250523
  Receipt Date: 20250523
  Transmission Date: 20250717
  Serious: Yes (Hospitalization)
  Sender: ZYDUS PHARM
  Company Number: US-CADILA HEALTHCARE LIMITED-US-ZYDUS-123859

PATIENT

DRUGS (1)
  1. LENALIDOMIDE [Suspect]
     Active Substance: LENALIDOMIDE
     Indication: Plasma cell myeloma
     Route: 048
     Dates: start: 202504, end: 2025

REACTIONS (6)
  - Rib fracture [Unknown]
  - Fall [Recovered/Resolved]
  - Eating disorder [Unknown]
  - Nausea [Unknown]
  - Vomiting [Unknown]
  - Blood electrolytes decreased [Unknown]

NARRATIVE: CASE EVENT DATE: 20250101
